FAERS Safety Report 4280769-X (Version None)
Quarter: 2004Q1

REPORT INFORMATION
  Report Type: 
  Country: None (occurrence: None)
  Receive Date: 20040128
  Receipt Date: 20040128
  Transmission Date: 20041129
  Serious: Yes (Hospitalization)
  Sender: FDA-Public Use
  Company Number: None

PATIENT
  Age: 44 Year
  Sex: Female
  Weight: 41.9577 kg

DRUGS (4)
  1. ARANESP [Suspect]
     Indication: ANAEMIA
     Dosage: 200 MCG EVERY 2 WE SUBCUTANEOUS
     Route: 058
     Dates: start: 20040105, end: 20040410
  2. ADRIAMYCIN PFS [Concomitant]
  3. CYTOXAN [Concomitant]
  4. XANAX [Concomitant]

REACTIONS (2)
  - CANDIDIASIS [None]
  - OESOPHAGITIS [None]
